FAERS Safety Report 4415839-6 (Version None)
Quarter: 2004Q3

REPORT INFORMATION
  Report Type: 
  Country: None (occurrence: None)
  Receive Date: 20040730
  Receipt Date: 20040719
  Transmission Date: 20050211
  Serious: Yes (Disabling)
  Sender: FDA-Public Use
  Company Number: 2004AC00184

PATIENT
  Age: 51 Year
  Sex: Male
  Weight: 120 kg

DRUGS (15)
  1. ROPIVACAINE [Suspect]
     Indication: ANALGESIC EFFECT
     Dosage: 10 ML ED
     Route: 008
  2. ROPIVACAINE [Suspect]
     Indication: ANALGESIC EFFECT
     Dosage: AT A RATE OF 5 ML/HR, INCREASED TO 10 ML/HR
  3. LIDOCAINE [Suspect]
     Indication: LOCAL ANAESTHESIA
     Dosage: 3 ML DAILY ED
     Route: 008
  4. LIDOCAINE [Suspect]
     Indication: LOCAL ANAESTHESIA
     Dosage: 3 ML DAILY ED
     Route: 008
  5. LACIDIPINE [Concomitant]
  6. ENALAPRIL MALEATE [Concomitant]
  7. HYDROCHLOROTHIAZIDE [Concomitant]
  8. GLIMEPIRIDE [Concomitant]
  9. HYDROXYZINE [Concomitant]
  10. MIDAZOLAM [Concomitant]
  11. PROPOFOL [Concomitant]
  12. SUFENTANIL [Concomitant]
  13. ATRACURIUM BESYLATE [Concomitant]
  14. LACTATED RINGER'S [Concomitant]
  15. LIDOCAINE [Concomitant]

REACTIONS (8)
  - BACK PAIN [None]
  - BURNING SENSATION [None]
  - HYPOTENSION [None]
  - NEUROTOXICITY [None]
  - PAIN IN EXTREMITY [None]
  - PARAESTHESIA [None]
  - PERIPHERAL SENSORY NEUROPATHY [None]
  - POLYNEUROPATHY [None]
